FAERS Safety Report 12360086 (Version 1)
Quarter: 2016Q2

REPORT INFORMATION
  Report Type: Spontaneous
  Country: CA (occurrence: CA)
  Receive Date: 20160512
  Receipt Date: 20160512
  Transmission Date: 20160815
  Serious: Yes (Hospitalization, Other)
  Sender: FDA-Public Use
  Company Number: CA-MYLANLABS-2016M1019616

PATIENT

DRUGS (2)
  1. ACETYLCYSTEINE. [Suspect]
     Active Substance: ACETYLCYSTEINE
     Indication: OVERDOSE
     Dosage: INITIATED AT 150 MG/KG INFUSION OVER 15 TO 60 MIN, TOTALLY ADMINISTERED FOR TWO HOURS.
     Route: 041
  2. PARACETAMOL [Suspect]
     Active Substance: ACETAMINOPHEN
     Indication: PRODUCT USED FOR UNKNOWN INDICATION
     Dosage: 30.7 G
     Route: 048

REACTIONS (4)
  - Overdose [Unknown]
  - Anaphylactoid reaction [Unknown]
  - Liver injury [Unknown]
  - Toxicity to various agents [Unknown]
